FAERS Safety Report 25579741 (Version 2)
Quarter: 2025Q3

REPORT INFORMATION
  Report Type: Spontaneous
  Country: US (occurrence: US)
  Receive Date: 20250718
  Receipt Date: 20250718
  Transmission Date: 20251021
  Serious: No
  Sender: NOVO NORDISK
  Company Number: US-NOVOPROD-1291596

PATIENT
  Age: 74 Year
  Sex: Female

DRUGS (2)
  1. WEGOVY [Suspect]
     Active Substance: SEMAGLUTIDE
     Indication: Weight control
     Dosage: 0.5 MG WEEKLY
     Route: 058
     Dates: start: 20240827
  2. WEGOVY [Suspect]
     Active Substance: SEMAGLUTIDE
     Indication: Weight control
     Route: 058

REACTIONS (4)
  - Feeling abnormal [Unknown]
  - Hypothyroidism [Unknown]
  - Weight loss poor [Unknown]
  - Vomiting [Unknown]

NARRATIVE: CASE EVENT DATE: 20240926
